FAERS Safety Report 24900532 (Version 1)
Quarter: 2025Q1

REPORT INFORMATION
  Report Type: Spontaneous
  Country: US (occurrence: None)
  Receive Date: 20250128
  Receipt Date: 20250128
  Transmission Date: 20250408
  Serious: Yes (Hospitalization)
  Sender: FDA-CTU
  Company Number: None

PATIENT
  Age: 79 Year
  Sex: Male
  Weight: 80 kg

DRUGS (1)
  1. IOPROMIDE [Suspect]
     Active Substance: IOPROMIDE
     Indication: Percutaneous coronary intervention
     Route: 042
     Dates: start: 20241122, end: 20241122

REACTIONS (3)
  - Pyrexia [None]
  - Urticaria [None]
  - Chills [None]

NARRATIVE: CASE EVENT DATE: 20241122
